FAERS Safety Report 22961057 (Version 3)
Quarter: 2024Q4

REPORT INFORMATION
  Report Type: Spontaneous
  Country: DE (occurrence: DE)
  Receive Date: 20230920
  Receipt Date: 20241010
  Transmission Date: 20250115
  Serious: Yes (Congenital Anomaly, Other)
  Sender: SANDOZ
  Company Number: DE-002147023-PHHY2015DE114519

PATIENT
  Sex: Female
  Weight: 1.83 kg

DRUGS (7)
  1. BECLOMETHASONE DIPROPIONATE [Suspect]
     Active Substance: BECLOMETHASONE DIPROPIONATE
     Indication: Foetal exposure during pregnancy
     Dosage: UNK (MATERNAL EXPOSURE DURING PREGNANCY)
     Route: 064
  2. DICLOFENAC [Suspect]
     Active Substance: DICLOFENAC
     Indication: Foetal exposure during pregnancy
     Dosage: 75 MG, BID
     Route: 064
  3. DICLOFENAC [Suspect]
     Active Substance: DICLOFENAC
     Dosage: 75 MG, BID
     Route: 064
  4. FORMOTEROL [Suspect]
     Active Substance: FORMOTEROL
     Indication: Foetal exposure during pregnancy
     Dosage: UNK (MATERNAL EXPOSURE DURING PREGNANCY)
     Route: 064
  5. OMEPRAZOLE [Suspect]
     Active Substance: OMEPRAZOLE
     Indication: Foetal exposure during pregnancy
     Dosage: 20 MG, QD (MATERNAL EXPOSURE DURING PREGNANCY)
     Route: 064
  6. PREDNISOLONE [Suspect]
     Active Substance: PREDNISOLONE
     Indication: Foetal exposure during pregnancy
     Dosage: 6 MG, QD (MATERNAL EXPOSURE DURING PREGNANCY)
     Route: 064
  7. SULFASALAZINE [Suspect]
     Active Substance: SULFASALAZINE
     Indication: Foetal exposure during pregnancy
     Dosage: 500 MG, QD (MATERNAL EXPOSURE DURING PREGNANCY)
     Route: 064

REACTIONS (5)
  - Talipes [Unknown]
  - Foetal growth restriction [Unknown]
  - Low birth weight baby [Unknown]
  - Premature baby [Unknown]
  - Foetal exposure during pregnancy [Unknown]
